FAERS Safety Report 7031375-5 (Version None)
Quarter: 2010Q4

REPORT INFORMATION
  Report Type: 
  Country: None (occurrence: None)
  Receive Date: 20101006
  Receipt Date: 20100929
  Transmission Date: 20110411
  Serious: Yes (Hospitalization)
  Sender: FDA-Public Use
  Company Number: US-AMGEN-QUU434441

PATIENT
  Sex: Male
  Weight: 104.4 kg

DRUGS (3)
  1. ENBREL [Suspect]
     Indication: PSORIASIS
     Route: 058
     Dates: start: 20060713, end: 20080901
  2. HUMIRA [Concomitant]
     Route: 058
     Dates: start: 20081021, end: 20100801
  3. TACLONEX [Concomitant]
     Dates: start: 20090401, end: 20100801

REACTIONS (1)
  - RENAL CANCER [None]
